FAERS Safety Report 13938601 (Version 2)
Quarter: 2017Q3

REPORT INFORMATION
  Report Type: Spontaneous
  Country: AU (occurrence: AU)
  Receive Date: 20170905
  Receipt Date: 20170906
  Transmission Date: 20171127
  Serious: Yes (Hospitalization, Other)
  Sender: FDA-Public Use
  Company Number: AU-BRISTOL-MYERS SQUIBB COMPANY-BMS-2017-077457

PATIENT
  Sex: Female

DRUGS (1)
  1. OPDIVO [Suspect]
     Active Substance: NIVOLUMAB
     Indication: LUNG NEOPLASM MALIGNANT
     Dosage: UNK, Q6WK
     Route: 065

REACTIONS (4)
  - Hallucination [Unknown]
  - Pain [Recovering/Resolving]
  - Delusion [Not Recovered/Not Resolved]
  - Malaise [Unknown]
